FAERS Safety Report 25172529 (Version 2)
Quarter: 2025Q2

REPORT INFORMATION
  Report Type: Spontaneous
  Country: US (occurrence: US)
  Receive Date: 20250408
  Receipt Date: 20250418
  Transmission Date: 20250717
  Serious: No
  Sender: ROCHE
  Company Number: US-ROCHE-10000252735

PATIENT
  Age: 38 Year
  Sex: Female
  Weight: 87.6 kg

DRUGS (1)
  1. OCREVUS [Suspect]
     Active Substance: OCRELIZUMAB
     Indication: Relapsing-remitting multiple sclerosis
     Dosage: 24/MAR/2024, 08/APR/2025, 06/OCT/2025 SCHED
     Route: 042
     Dates: start: 20250325

REACTIONS (2)
  - Headache [Recovered/Resolved]
  - Product prescribing error [Unknown]

NARRATIVE: CASE EVENT DATE: 20250325
